FAERS Safety Report 9144176 (Version 1)
Quarter: 2013Q1

REPORT INFORMATION
  Report Type: Spontaneous
  Country: US (occurrence: US)
  Receive Date: 20130306
  Receipt Date: 20130306
  Transmission Date: 20140127
  Serious: No
  Sender: FDA-Public Use
  Company Number: US-ASTRAZENECA-2013SE11953

PATIENT
  Age: 78 Year
  Sex: Female
  Weight: 64 kg

DRUGS (5)
  1. SYMBICORT [Suspect]
     Indication: ASTHMA
     Dosage: 160/4.5 TWO PUFFS, BID
     Route: 055
     Dates: start: 2009
  2. SYMBICORT [Suspect]
     Indication: ASTHMA
     Dosage: TWO PUFFS, TWO TIMES A DAY
     Route: 055
  3. PREDNISONE [Suspect]
     Indication: ASTHMA
     Route: 048
  4. PREDNISONE [Suspect]
     Indication: ASTHMA
     Route: 048
     Dates: end: 20130209
  5. ARICEPT [Concomitant]
     Indication: DEMENTIA
     Route: 048

REACTIONS (5)
  - Glaucoma [Unknown]
  - Cataract [Unknown]
  - Macular degeneration [Unknown]
  - Rash [Recovered/Resolved]
  - Off label use [Unknown]
